FAERS Safety Report 19132260 (Version 1)
Quarter: 2021Q2

REPORT INFORMATION
  Report Type: Spontaneous
  Country: US (occurrence: US)
  Receive Date: 20210414
  Receipt Date: 20210414
  Transmission Date: 20210717
  Serious: No
  Sender: FDA-Public Use
  Company Number: US-ASTRAZENECA-2021A265334

PATIENT
  Sex: Male
  Weight: 81.6 kg

DRUGS (1)
  1. BYDUREON [Suspect]
     Active Substance: EXENATIDE
     Indication: TYPE 2 DIABETES MELLITUS
     Route: 065
     Dates: end: 20210331

REACTIONS (5)
  - Blood glucose increased [Unknown]
  - Device leakage [Unknown]
  - Intentional device misuse [Unknown]
  - Product use issue [Unknown]
  - Incorrect dose administered by device [Unknown]
